FAERS Safety Report 24699763 (Version 1)
Quarter: 2024Q4

REPORT INFORMATION
  Report Type: Spontaneous
  Country: US (occurrence: US)
  Receive Date: 20241205
  Receipt Date: 20241205
  Transmission Date: 20250114
  Serious: No
  Sender: ABBVIE
  Company Number: US-ABBVIE-6029430

PATIENT
  Age: 53 Year
  Sex: Female

DRUGS (4)
  1. BOTOX [Suspect]
     Active Substance: ONABOTULINUMTOXINA
     Indication: Migraine
     Dosage: TIME INTERVAL: AS NECESSARY: FREQUENCY- EVERY 3 MONTHS, START DATE- ABOUT TWENTY YEARS AGO
     Route: 030
     Dates: start: 2004, end: 2004
  2. BOTOX [Suspect]
     Active Substance: ONABOTULINUMTOXINA
     Indication: Migraine
     Dosage: TIME INTERVAL: AS NECESSARY: INJECTIONS ON EACH SIDE OF JAW
     Route: 065
  3. BOTOX [Suspect]
     Active Substance: ONABOTULINUMTOXINA
     Indication: Migraine
     Dosage: TIME INTERVAL: AS NECESSARY: 2 INJECTIONS ON EACH SIDE OF JAW
     Route: 065
     Dates: start: 202410, end: 202410
  4. PROCAINE [Suspect]
     Active Substance: PROCAINE
     Indication: Local anaesthesia
     Route: 065

REACTIONS (3)
  - Off label use [Unknown]
  - Drug ineffective [Not Recovered/Not Resolved]
  - Therapeutic response shortened [Unknown]

NARRATIVE: CASE EVENT DATE: 20241101
